FAERS Safety Report 9466923 (Version 1)
Quarter: 2013Q3

REPORT INFORMATION
  Report Type: Spontaneous
  Country: US (occurrence: US)
  Receive Date: 20130820
  Receipt Date: 20130820
  Transmission Date: 20140515
  Serious: Yes (Other)
  Sender: FDA-Public Use
  Company Number: US-GLAXOSMITHKLINE-A1038020A

PATIENT
  Age: 53 Year
  Sex: Female

DRUGS (14)
  1. BENLYSTA [Suspect]
     Indication: SYSTEMIC LUPUS ERYTHEMATOSUS
     Route: 042
     Dates: start: 201202
  2. SYNTHROID [Concomitant]
  3. NORVASC [Concomitant]
  4. LITHIUM [Concomitant]
  5. RISPERDAL [Concomitant]
  6. METFORMIN [Concomitant]
  7. AMARYL [Concomitant]
  8. PREDNISONE [Concomitant]
  9. METHOTREXATE [Concomitant]
  10. FOLIC ACID [Concomitant]
  11. CALTRATE + D [Concomitant]
  12. ASPIRIN [Concomitant]
  13. VITAMIN B [Concomitant]
  14. VITAMIN C [Concomitant]

REACTIONS (1)
  - Breast cancer female [Not Recovered/Not Resolved]
